FAERS Safety Report 11350935 (Version 1)
Quarter: 2015Q3

REPORT INFORMATION
  Report Type: Spontaneous
  Country: US (occurrence: US)
  Receive Date: 20150807
  Receipt Date: 20150807
  Transmission Date: 20151125
  Serious: No
  Sender: FDA-Public Use
  Company Number: US-JNJFOC-20150400803

PATIENT
  Age: 56 Year
  Sex: Female
  Weight: 62.6 kg

DRUGS (19)
  1. PRISTIQ EXTENDED RELEASE [Concomitant]
     Active Substance: DESVENLAFAXINE SUCCINATE
     Indication: DEPRESSION
     Dosage: INTERVAL: 6 YEARS
     Route: 065
  2. DYAZIDE [Concomitant]
     Active Substance: HYDROCHLOROTHIAZIDE\TRIAMTERENE
     Indication: BLOOD PRESSURE MEASUREMENT
     Dosage: 37.5 -25 MG, INTERVAL: 4 YEARS
     Route: 065
  3. CLONAZEPAM. [Concomitant]
     Active Substance: CLONAZEPAM
     Indication: SLEEP DISORDER THERAPY
     Dosage: INTERVAL: 10 PLUS YEARS
     Route: 065
  4. GINKGO BILOBA [Concomitant]
     Active Substance: GINKGO
     Indication: MEMORY IMPAIRMENT
     Dosage: 1 YEAR
     Route: 065
  5. FLONASE [Concomitant]
     Active Substance: FLUTICASONE PROPIONATE
     Indication: MULTIPLE ALLERGIES
     Dosage: INTERVAL: 10 YEARS, NAME REPORTED AS FLONASE NOSE SPRAY, 2 SPRAYS EACH NOSTRIL
     Route: 045
  6. WOMENS ROGAINE UNSCENTED [Suspect]
     Active Substance: MINOXIDIL
     Route: 061
  7. MULTIVITAMINS, [Concomitant]
     Indication: ROUTINE HEALTH MAINTENANCE
     Dosage: INTERVAL: 20 YEARS
     Route: 065
  8. VITAMIN D3 [Concomitant]
     Active Substance: CHOLECALCIFEROL
     Indication: ROUTINE HEALTH MAINTENANCE
     Dosage: INTERVAL: 8 YEARS
     Route: 065
  9. ACIDOPHILUS [Concomitant]
     Active Substance: LACTOBACILLUS ACIDOPHILUS
     Indication: PROBIOTIC THERAPY
     Dosage: 5 YEARS
     Route: 065
  10. GLUCOSAMINE / CHONDROITIN [Concomitant]
     Indication: ARTHRITIS
     Dosage: 15/1200, 2 A DAY, 10 YEARS
     Route: 065
  11. WOMENS ROGAINE UNSCENTED [Suspect]
     Active Substance: MINOXIDIL
     Indication: PRODUCT USED FOR UNKNOWN INDICATION
     Dosage: 1/2 A CAP
     Route: 061
     Dates: start: 20150323, end: 20150329
  12. AZO CRANBERRY [Concomitant]
     Indication: URINARY TRACT DISORDER
     Dosage: 5-6 YEARS
     Route: 065
  13. GINKGO BILOBA [Concomitant]
     Active Substance: GINKGO
     Indication: DISTURBANCE IN ATTENTION
     Dosage: 1 YEAR
     Route: 065
  14. WELLBUTRIN [Concomitant]
     Active Substance: BUPROPION HYDROCHLORIDE
     Indication: DEPRESSION
     Dosage: INTERVAL: 5 YEARS
     Route: 065
  15. SIMVASTATIN. [Concomitant]
     Active Substance: SIMVASTATIN
     Indication: BLOOD CHOLESTEROL
     Dosage: INTERVAL: 10 PLUS YEARS
     Route: 065
  16. METFORMIN [Concomitant]
     Active Substance: METFORMIN HYDROCHLORIDE
     Indication: TYPE 2 DIABETES MELLITUS
     Dosage: INTERVAL: 13 YEARS
     Route: 065
  17. VESICARE [Concomitant]
     Active Substance: SOLIFENACIN SUCCINATE
     Indication: BLADDER DISORDER
     Dosage: INTERVAL: 5-6 YEARS
     Route: 065
  18. ASTEPRO [Concomitant]
     Active Substance: AZELASTINE HYDROCHLORIDE
     Indication: MULTIPLE ALLERGIES
     Dosage: 1 SPRAY EACH NOSTRIL, INTERVAL: 8 YEARS
     Route: 045
  19. ALLEGRA [Concomitant]
     Active Substance: FEXOFENADINE HYDROCHLORIDE
     Indication: MULTIPLE ALLERGIES
     Dosage: INTERVAL: 20 YEARS
     Route: 065

REACTIONS (2)
  - Erythema [Recovering/Resolving]
  - Breast pain [Unknown]

NARRATIVE: CASE EVENT DATE: 20150326
